FAERS Safety Report 4508917-4 (Version None)
Quarter: 2004Q4

REPORT INFORMATION
  Report Type: 
  Country: None (occurrence: None)
  Receive Date: 20041123
  Receipt Date: 20041122
  Transmission Date: 20050328
  Serious: Yes (Other)
  Sender: FDA-Public Use
  Company Number: US-GLAXOSMITHKLINE-A0534877A

PATIENT
  Age: 65 Year
  Sex: Male

DRUGS (3)
  1. AUGMENTIN '125' [Suspect]
     Indication: ILL-DEFINED DISORDER
     Dosage: 875MG TWICE PER DAY
     Route: 048
     Dates: start: 20021101
  2. PLAVIX [Concomitant]
  3. HYTRIN [Concomitant]

REACTIONS (2)
  - EPISTAXIS [None]
  - THROMBOSIS [None]
